FAERS Safety Report 8217678-7 (Version None)
Quarter: 2012Q1

REPORT INFORMATION
  Report Type: 
  Country: None (occurrence: None)
  Receive Date: 20120315
  Receipt Date: 20120305
  Transmission Date: 20120608
  Serious: Yes (Other)
  Sender: FDA-Public Use
  Company Number: 2011MA007809

PATIENT
  Age: 59 Year

DRUGS (2)
  1. PRAMIPEXOLE DIHYDROCHLORIDE [Suspect]
     Indication: PARKINSON'S DISEASE
     Dosage: 1.5 MG;TID;PO
     Route: 048
     Dates: start: 20060101
  2. MADOPAR (MADOPAR) [Suspect]
     Dosage: PO
     Route: 048
     Dates: start: 20070101

REACTIONS (1)
  - GAMBLING [None]
